FAERS Safety Report 5489728-2 (Version None)
Quarter: 2007Q4

REPORT INFORMATION
  Report Type: 
  Country: None (occurrence: None)
  Receive Date: 20071018
  Receipt Date: 20071010
  Transmission Date: 20080405
  Serious: Yes (Hospitalization)
  Sender: FDA-Public Use
  Company Number: NO-ASTRAZENECA-2007SE05471

PATIENT
  Age: 12217 Day
  Sex: Female

DRUGS (2)
  1. ESOPRAL (FARMAGON) [Suspect]
     Indication: OESOPHAGITIS
     Route: 048
     Dates: start: 20071003, end: 20071006
  2. MICROGYNON [Concomitant]

REACTIONS (3)
  - ABDOMINAL DISCOMFORT [None]
  - DRUG INEFFECTIVE [None]
  - FOOD POISONING [None]
